FAERS Safety Report 10485388 (Version 2)
Quarter: 2014Q3

REPORT INFORMATION
  Report Type: Spontaneous
  Country: PL (occurrence: PL)
  Receive Date: 20140930
  Receipt Date: 20140930
  Transmission Date: 20150326
  Serious: Yes (Other)
  Sender: FDA-Public Use
  Company Number: PL-BAXTER-2014BAX053184

PATIENT
  Age: 57 Year
  Sex: Female

DRUGS (1)
  1. SODIUM CHLORIDE 0.9% WET BAXTER [Suspect]
     Active Substance: SODIUM CHLORIDE
     Indication: ELECTROLYTE IMBALANCE
     Route: 042

REACTIONS (1)
  - Drug ineffective [Not Recovered/Not Resolved]
